FAERS Safety Report 24286403 (Version 2)
Quarter: 2024Q4

REPORT INFORMATION
  Report Type: Spontaneous
  Country: NL (occurrence: NL)
  Receive Date: 20240905
  Receipt Date: 20241021
  Transmission Date: 20250115
  Serious: Yes (Other)
  Sender: SHILPA MEDICARE
  Company Number: NL-ROCHE-10000061273

PATIENT
  Age: 36 Year
  Sex: Male
  Weight: 70 kg

DRUGS (6)
  1. GEMCITABINE [Suspect]
     Active Substance: GEMCITABINE
     Indication: Burkitt^s lymphoma stage IV
     Dosage: FOURTH LINE TREATMENT, ONLY ONE COURSE OF 28D WAS GIVEN IN TOTAL.
     Route: 042
     Dates: start: 20210520, end: 20210520
  2. GEMCITABINE [Suspect]
     Active Substance: GEMCITABINE
     Indication: Disease progression
  3. IDELALISIB [Suspect]
     Active Substance: IDELALISIB
     Indication: Burkitt^s lymphoma stage IV
     Dosage: FOURTH LINE TREATMENT
     Route: 048
     Dates: start: 20210409
  4. IDELALISIB [Suspect]
     Active Substance: IDELALISIB
     Indication: Disease progression
  5. DEXAMETHASONE [Suspect]
     Active Substance: DEXAMETHASONE
     Indication: Burkitt^s lymphoma stage IV
     Dosage: FOURTH LINE TREATMENT, 40MG ORALLY OD IN A SCHEDULE 4 DAYS ON, 4 DAYS OFF.
     Route: 048
     Dates: start: 20210409
  6. DEXAMETHASONE [Suspect]
     Active Substance: DEXAMETHASONE
     Indication: Disease progression

REACTIONS (1)
  - Bronchopulmonary aspergillosis [Unknown]

NARRATIVE: CASE EVENT DATE: 20210528
